FAERS Safety Report 16299987 (Version 2)
Quarter: 2019Q3

REPORT INFORMATION
  Report Type: Spontaneous
  Country: MX (occurrence: MX)
  Receive Date: 20190510
  Receipt Date: 20190726
  Transmission Date: 20191004
  Serious: Yes (Other)
  Sender: FDA-Public Use
  Company Number: MX-ASTRAZENECA-2019SE69499

PATIENT
  Age: 49 Year
  Sex: Male
  Weight: 85 kg

DRUGS (9)
  1. CRESTOR [Suspect]
     Active Substance: ROSUVASTATIN CALCIUM
     Indication: BLOOD CHOLESTEROL INCREASED
     Dosage: 1 TABLET EVERY 24 HOURS AT NIGHT, ALTERNATED EVERY THIRD DAY
     Route: 048
     Dates: start: 2017
  2. HELICOBLIS [Concomitant]
     Indication: COLITIS
     Dosage: DAILY
     Route: 048
     Dates: start: 201901, end: 201901
  3. CONTROLIP [Concomitant]
     Active Substance: FENOFIBRATE
     Indication: BLOOD CHOLESTEROL INCREASED
     Dosage: 1 TABLET EVERY 24 HOURS, EVERY THIRD DAY (ALTERNATED WITH CRESTOR, 1 DAY AND ANOTHER DAY OTHER)
     Route: 048
     Dates: start: 2017
  4. LIBERTRIM [Concomitant]
     Active Substance: TRIMEBUTINE
     Indication: IRRITABLE BOWEL SYNDROME
     Dosage: 200/45/75 MG 1 EVERY 12 HOURS
     Route: 048
     Dates: start: 2018, end: 201906
  5. SUCRALFATE. [Concomitant]
     Active Substance: SUCRALFATE
     Indication: COLITIS
     Route: 048
     Dates: start: 201901, end: 201901
  6. FIRAC PLUS [Concomitant]
     Indication: IRRITABLE BOWEL SYNDROME
     Dosage: 20.0MG AS REQUIRED
     Route: 048
     Dates: start: 2018, end: 201906
  7. FLORATIL [Concomitant]
     Active Substance: SACCHAROMYCES CEREVISIAE
     Indication: COLITIS
     Route: 048
     Dates: start: 201901, end: 201901
  8. CONTROLIP [Concomitant]
     Active Substance: FENOFIBRATE
     Indication: BLOOD TRIGLYCERIDES ABNORMAL
     Dosage: 1 TABLET EVERY 24 HOURS, EVERY THIRD DAY (ALTERNATED WITH CRESTOR, 1 DAY AND ANOTHER DAY OTHER)
     Route: 048
     Dates: start: 2017
  9. TECTA [Concomitant]
     Active Substance: PANTOPRAZOLE MAGNESIUM
     Indication: COLITIS
     Route: 048
     Dates: start: 201901, end: 201902

REACTIONS (7)
  - Drug interaction [Unknown]
  - Irritable bowel syndrome [Recovered/Resolved]
  - Cholelithiasis [Recovered/Resolved]
  - Diverticulitis [Unknown]
  - Helicobacter infection [Recovered/Resolved]
  - Colitis [Unknown]
  - Overweight [Unknown]

NARRATIVE: CASE EVENT DATE: 2018
